FAERS Safety Report 6371196-X (Version None)
Quarter: 2009Q3

REPORT INFORMATION
  Report Type: 
  Country: None (occurrence: None)
  Receive Date: 20090923
  Receipt Date: 20080528
  Transmission Date: 20100115
  Serious: No
  Sender: FDA-Public Use
  Company Number: US-ASTRAZENECA-2006UW27571

PATIENT
  Age: 34 Year
  Sex: Male
  Weight: 92.5 kg

DRUGS (15)
  1. SEROQUEL [Suspect]
     Route: 048
  2. RISPERDAL [Suspect]
     Indication: BIPOLAR DISORDER
     Route: 048
     Dates: start: 20020501, end: 20050901
  3. RISPERDAL [Suspect]
     Route: 048
     Dates: start: 20020501, end: 20060720
  4. ZYPREXA [Suspect]
  5. CYMBALTA [Concomitant]
  6. CRESTOR [Concomitant]
  7. PREVACID [Concomitant]
  8. DOSTINEX [Concomitant]
  9. GEODON [Concomitant]
  10. ANDROGEL [Concomitant]
  11. FLUOXETINE [Concomitant]
  12. FLUVOXAMINE MALEATE [Concomitant]
  13. WELLBUTRIN [Concomitant]
  14. TOPAMAX [Concomitant]
  15. EFFEXOR [Concomitant]

REACTIONS (3)
  - HYPOGONADISM [None]
  - LIBIDO DECREASED [None]
  - TYPE 2 DIABETES MELLITUS [None]
